FAERS Safety Report 14599965 (Version 1)
Quarter: 2018Q1

REPORT INFORMATION
  Report Type: Spontaneous
  Country: None (occurrence: US)
  Receive Date: 20180305
  Receipt Date: 20180305
  Transmission Date: 20180509
  Serious: Yes (Other)
  Sender: FDA-Public Use
  Company Number: US-MEDAC PHARMA, INC.-2042977

PATIENT
  Sex: Female

DRUGS (1)
  1. RASUVO [Suspect]
     Active Substance: METHOTREXATE SODIUM

REACTIONS (2)
  - Drug ineffective [Unknown]
  - Vertigo [Unknown]
